FAERS Safety Report 16597966 (Version 14)
Quarter: 2020Q4

REPORT INFORMATION
  Report Type: Spontaneous
  Country: US (occurrence: US)
  Receive Date: 20190719
  Receipt Date: 20201111
  Transmission Date: 20210113
  Serious: Yes (Death)
  Sender: FDA-Public Use
  Company Number: US-PFIZER INC-2019307620

PATIENT
  Age: 81 Year
  Sex: Female
  Weight: 89 kg

DRUGS (2)
  1. IBRANCE [Suspect]
     Active Substance: PALBOCICLIB
     Indication: BREAST CANCER METASTATIC
     Dosage: 100 MG, CYCLIC (ONCE DAILY WITH OR WITHOUT FOOD FOR 21 DAYS FOLLOWED BY 7 DAYS OFF)
     Route: 048
     Dates: start: 2019
  2. IBRANCE [Suspect]
     Active Substance: PALBOCICLIB
     Dosage: 125 MG

REACTIONS (14)
  - Anaemia vitamin B12 deficiency [Unknown]
  - Cough [Unknown]
  - Dyspnoea [Unknown]
  - Death [Fatal]
  - Rash [Unknown]
  - Malaise [Unknown]
  - Peripheral swelling [Unknown]
  - Pruritus [Recovering/Resolving]
  - Asthma [Unknown]
  - Bronchitis [Unknown]
  - Oral candidiasis [Unknown]
  - Blood calcium increased [Unknown]
  - Stomatitis [Not Recovered/Not Resolved]
  - Fatigue [Unknown]
